FAERS Safety Report 15891580 (Version 1)
Quarter: 2019Q1

REPORT INFORMATION
  Report Type: Spontaneous
  Country: DK (occurrence: DK)
  Receive Date: 20190130
  Receipt Date: 20190130
  Transmission Date: 20190417
  Serious: Yes (Hospitalization)
  Sender: FDA-Public Use
  Company Number: PHHY2019DK018838

PATIENT
  Age: 38 Year
  Sex: Female

DRUGS (3)
  1. PANCILLIN [Suspect]
     Active Substance: PENICILLIN V
     Indication: INFECTION
     Dosage: 3000000 IU, QD(1 MILL. IE.)
     Route: 048
     Dates: start: 20181130, end: 20181202
  2. METRONIDAZOLE. [Concomitant]
     Active Substance: METRONIDAZOLE
     Dosage: 1500 MG, QD
     Route: 048
     Dates: start: 20181204
  3. METRONIDAZOLE. [Concomitant]
     Active Substance: METRONIDAZOLE
     Indication: INFECTION
     Dosage: 1500 MG, QD
     Route: 048
     Dates: start: 20181130

REACTIONS (3)
  - Choking sensation [Recovering/Resolving]
  - Drug hypersensitivity [Unknown]
  - Rash pruritic [Unknown]

NARRATIVE: CASE EVENT DATE: 201812
